FAERS Safety Report 23445965 (Version 5)
Quarter: 2024Q2

REPORT INFORMATION
  Report Type: Report from Study
  Country: CA (occurrence: CA)
  Receive Date: 20240126
  Receipt Date: 20240604
  Transmission Date: 20240716
  Serious: Yes (Hospitalization, Other)
  Sender: FDA-Public Use
  Company Number: CA-JNJFOC-20230964935

PATIENT
  Age: 63 Year
  Sex: Female
  Weight: 103 kg

DRUGS (7)
  1. SIMPONI [Suspect]
     Active Substance: GOLIMUMAB
     Indication: Rheumatoid arthritis
     Route: 058
     Dates: start: 20221219
  2. SIMPONI [Suspect]
     Active Substance: GOLIMUMAB
     Route: 058
     Dates: start: 20230208
  3. SIMPONI [Suspect]
     Active Substance: GOLIMUMAB
     Route: 058
  4. SIMPONI [Suspect]
     Active Substance: GOLIMUMAB
     Route: 058
  5. SIMPONI [Suspect]
     Active Substance: GOLIMUMAB
     Route: 058
  6. SIMPONI [Suspect]
     Active Substance: GOLIMUMAB
     Route: 058
     Dates: start: 20230208
  7. LASIX [Suspect]
     Active Substance: FUROSEMIDE
     Indication: Product used for unknown indication
     Route: 065

REACTIONS (10)
  - Hospitalisation [Unknown]
  - Chronic kidney disease [Unknown]
  - Acute pulmonary oedema [Recovering/Resolving]
  - Nephrolithiasis [Recovered/Resolved]
  - Rheumatoid arthritis [Unknown]
  - Cardiac disorder [Unknown]
  - Haemorrhage [Unknown]
  - Pain [Unknown]
  - Blood calcium increased [Unknown]
  - Drug ineffective [Unknown]

NARRATIVE: CASE EVENT DATE: 20230930
